FAERS Safety Report 22645651 (Version 1)
Quarter: 2023Q2

REPORT INFORMATION
  Report Type: Spontaneous
  Country: ES (occurrence: ES)
  Receive Date: 20230627
  Receipt Date: 20230627
  Transmission Date: 20230721
  Serious: Yes (Death, Other)
  Sender: FDA-Public Use
  Company Number: ES-JNJFOC-20230633158

PATIENT
  Age: 71 Year
  Sex: Female

DRUGS (16)
  1. CYTARABINE [Suspect]
     Active Substance: CYTARABINE
     Indication: Diffuse large B-cell lymphoma stage IV
     Dosage: 5TH LINE AS A PART OF R-MTX-ARA-C REGIMEN
     Route: 065
  2. RITUXIMAB [Suspect]
     Active Substance: RITUXIMAB
     Indication: Diffuse large B-cell lymphoma stage IV
     Dosage: 1ST LINE, 6 CYCLES AS A PART OF RCHOP REGIMEN
     Route: 065
  3. RITUXIMAB [Suspect]
     Active Substance: RITUXIMAB
     Dosage: 3RD LINE, 1 CYCLE, BRIDGE THERAPY
     Route: 065
  4. RITUXIMAB [Suspect]
     Active Substance: RITUXIMAB
     Dosage: 5TH LINE AS A PART OF R-MTX-ARA-C REGIMEN
     Route: 065
  5. VINCRISTINE SULFATE [Suspect]
     Active Substance: VINCRISTINE SULFATE
     Indication: Diffuse large B-cell lymphoma stage IV
     Dosage: 1ST LINE, 6 CYCLES AS A PART OF RCHOP REGIMEN
     Route: 065
  6. METHOTREXATE SODIUM [Suspect]
     Active Substance: METHOTREXATE SODIUM
     Indication: Diffuse large B-cell lymphoma stage IV
     Dosage: 5TH LINE AS A PART OF R-MTX-ARA-C REGIMEN
     Route: 065
  7. DOXORUBICIN HYDROCHLORIDE [Suspect]
     Active Substance: DOXORUBICIN HYDROCHLORIDE
     Indication: Diffuse large B-cell lymphoma stage IV
     Dosage: 1ST LINE, 6 CYCLES AS A PART OF RCHOP REGIMEN
     Route: 065
  8. EPIRUBICIN HYDROCHLORIDE [Suspect]
     Active Substance: EPIRUBICIN HYDROCHLORIDE
     Indication: Diffuse large B-cell lymphoma stage IV
     Dosage: 2ND LINE, 8 CYCLES AS A PART OF EC REGIMEN
     Route: 065
  9. CYCLOPHOSPHAMIDE [Suspect]
     Active Substance: CYCLOPHOSPHAMIDE
     Indication: Diffuse large B-cell lymphoma stage IV
     Dosage: 1ST LINE, 6 CYCLES AS A PART OF RCHOP REGIMEN
     Route: 065
  10. CYCLOPHOSPHAMIDE [Suspect]
     Active Substance: CYCLOPHOSPHAMIDE
     Dosage: 2ND LINE, 8 CYCLES AS A PART OF EC REGIMEN
     Route: 065
  11. IMBRUVICA [Suspect]
     Active Substance: IBRUTINIB
     Indication: Diffuse large B-cell lymphoma stage IV
     Dosage: 6TH LINE, 4 CYCLES
     Route: 048
  12. DEXAMETHASONE [Suspect]
     Active Substance: DEXAMETHASONE
     Indication: Diffuse large B-cell lymphoma stage IV
     Dosage: UNK
     Route: 065
  13. PREDNISONE [Suspect]
     Active Substance: PREDNISONE
     Indication: Diffuse large B-cell lymphoma stage IV
     Dosage: 1ST LINE, 6 CYCLES AS A PART OF RCHOP REGIMEN
     Route: 065
  14. MOSUNETUZUMAB [Suspect]
     Active Substance: MOSUNETUZUMAB
     Indication: Diffuse large B-cell lymphoma stage IV
     Dosage: 2ND LINE, 8 CYCLES
     Route: 065
  15. TEMOZOLOMIDE [Suspect]
     Active Substance: TEMOZOLOMIDE
     Indication: Diffuse large B-cell lymphoma stage IV
     Dosage: 6TH LINE, 4 CYCLES
     Route: 065
  16. BENDAMUSTINE HYDROCHLORIDE [Suspect]
     Active Substance: BENDAMUSTINE HYDROCHLORIDE
     Indication: Diffuse large B-cell lymphoma stage IV
     Dosage: 3RD LINE, 1 CYCLE, BRIDGE THERAPY
     Route: 042

REACTIONS (5)
  - Death [Fatal]
  - Vasogenic cerebral oedema [Not Recovered/Not Resolved]
  - Neurological symptom [Unknown]
  - Disorientation [Unknown]
  - Neoplasm progression [Not Recovered/Not Resolved]
